FAERS Safety Report 7130773-9 (Version None)
Quarter: 2010Q4

REPORT INFORMATION
  Report Type: 
  Country: None (occurrence: None)
  Receive Date: 20101201
  Receipt Date: 20101122
  Transmission Date: 20110411
  Serious: Yes (Hospitalization)
  Sender: FDA-Public Use
  Company Number: BR-US-EMD SERONO, INC.-7029233

PATIENT
  Sex: Male

DRUGS (5)
  1. REBIF [Suspect]
     Indication: SECONDARY PROGRESSIVE MULTIPLE SCLEROSIS
  2. CYPROFLOXACIN [Concomitant]
  3. IBUPROFEN [Concomitant]
  4. VITAMINE C [Concomitant]
  5. CITTA [Concomitant]

REACTIONS (1)
  - URINARY TRACT INFECTION [None]
